FAERS Safety Report 9067474 (Version 1)
Quarter: 2013Q1

REPORT INFORMATION
  Report Type: Spontaneous
  Country: US (occurrence: US)
  Receive Date: 20130129
  Receipt Date: 20130129
  Transmission Date: 20140127
  Serious: Yes (Death)
  Sender: FDA-Public Use
  Company Number: PHEH2013US002413

PATIENT
  Age: 64 None
  Sex: Female

DRUGS (9)
  1. AFINITOR [Suspect]
     Dosage: 10 MG, DAILY
     Route: 048
  2. EFFEXOR [Concomitant]
     Dosage: 75 MG, UNK
  3. AMBIEN [Concomitant]
     Dosage: 5 MG, UNK
  4. TRAZODONE [Concomitant]
     Dosage: 50 MG, UNK
  5. LORAZEPAM [Concomitant]
     Dosage: 0.5 MG, UNK
  6. ALOE VERA [Concomitant]
  7. MULTIVITAMINS [Concomitant]
  8. SUPPORT-500 [Concomitant]
  9. DETOX-KIT-HEEL [Concomitant]

REACTIONS (1)
  - Death [Fatal]
